FAERS Safety Report 17696742 (Version 1)
Quarter: 2020Q2

REPORT INFORMATION
  Report Type: Spontaneous
  Country: US (occurrence: US)
  Receive Date: 20200423
  Receipt Date: 20200423
  Transmission Date: 20200714
  Serious: Yes (Hospitalization, Other)
  Sender: FDA-Public Use
  Company Number: US-ALS-000034

PATIENT
  Sex: Female
  Weight: .87 kg

DRUGS (4)
  1. ASCORBIC ACID/CALCIUM PANTOTHENATE/CYANOCOBALAMIN/ERGOCALCIFEROL/NICOTINAMIDE/PYRIDOXINE HYDROCHLORI [Suspect]
     Active Substance: VITAMINS
     Indication: PRODUCT USED FOR UNKNOWN INDICATION
     Route: 064
  2. QUETIAPINE. [Suspect]
     Active Substance: QUETIAPINE
     Indication: PRODUCT USED FOR UNKNOWN INDICATION
     Route: 064
  3. PARACETAMOL [Suspect]
     Active Substance: ACETAMINOPHEN
     Indication: PRODUCT USED FOR UNKNOWN INDICATION
     Route: 064
  4. ACETYLSALICYLIC ACID [Suspect]
     Active Substance: ASPIRIN
     Indication: PRODUCT USED FOR UNKNOWN INDICATION
     Route: 064

REACTIONS (6)
  - Bradycardia foetal [Recovered/Resolved]
  - Coagulopathy [Recovered/Resolved]
  - Renal impairment [Recovered/Resolved]
  - Premature baby [Unknown]
  - Anaemia [Recovered/Resolved]
  - Foetal exposure during pregnancy [Unknown]
